FAERS Safety Report 6154796-1 (Version None)
Quarter: 2009Q2

REPORT INFORMATION
  Report Type: 
  Country: None (occurrence: None)
  Receive Date: 20090414
  Receipt Date: 20090407
  Transmission Date: 20091009
  Serious: Yes (Other)
  Sender: FDA-Public Use
  Company Number: PHHY2009JP10486

PATIENT
  Sex: Male

DRUGS (4)
  1. ZOMETA [Suspect]
     Indication: METASTASES TO BONE
     Dosage: UNK
     Route: 042
  2. ZOMETA [Suspect]
     Indication: PROSTATE CANCER METASTATIC
  3. LEUPLIN [Concomitant]
     Indication: PROSTATE CANCER
     Route: 042
  4. MACROLIDES [Concomitant]

REACTIONS (5)
  - GINGIVAL SWELLING [None]
  - OSTEOMYELITIS [None]
  - PAIN IN JAW [None]
  - PURULENT DISCHARGE [None]
  - TOOTH EXTRACTION [None]
